FAERS Safety Report 5042275-4 (Version None)
Quarter: 2006Q2

REPORT INFORMATION
  Report Type: 
  Country: None (occurrence: None)
  Receive Date: 20060627
  Receipt Date: 20060609
  Transmission Date: 20061013
  Serious: Yes (Other)
  Sender: FDA-Public Use
  Company Number: FR200606002174

PATIENT
  Age: 64 Year
  Sex: Female

DRUGS (7)
  1. FORTEO [Suspect]
     Indication: OSTEOPOROSIS
     Dosage: 20 UG DAILY (1/D), SUBCUTANEOUS
     Route: 058
     Dates: start: 20060111
  2. FORTEO [Concomitant]
  3. DURAGESIC-100 [Concomitant]
  4. ACETAMINOPHEN W/ PROPOXYPHENE HCL [Concomitant]
  5. AMITRIPTYLINE HCL [Concomitant]
  6. STABLON (TIANEPTINE) [Concomitant]
  7. CALCIUM GLUCONATE [Concomitant]

REACTIONS (1)
  - LUNG NEOPLASM [None]
